FAERS Safety Report 20968695 (Version 2)
Quarter: 2022Q3

REPORT INFORMATION
  Report Type: Spontaneous
  Country: IT (occurrence: IT)
  Receive Date: 20220616
  Receipt Date: 20220701
  Transmission Date: 20221026
  Serious: Yes (Hospitalization, Other)
  Sender: FDA-Public Use
  Company Number: IT-TEVA-2022-IT-2045362

PATIENT
  Age: 21 Year
  Sex: Female

DRUGS (4)
  1. PREDNISONE [Suspect]
     Active Substance: PREDNISONE
     Indication: Immune thrombocytopenia
     Dosage: 50 MILLIGRAM DAILY; 1 MG/KG
     Route: 065
  2. HUMAN IMMUNOGLOBULIN G [Suspect]
     Active Substance: HUMAN IMMUNOGLOBULIN G
     Indication: Immune thrombocytopenia
     Dosage: 1 G/KG
     Route: 042
  3. ERYTHROMYCIN [Suspect]
     Active Substance: ERYTHROMYCIN
     Indication: Breast abscess
     Route: 065
  4. ERYTHROMYCIN [Suspect]
     Active Substance: ERYTHROMYCIN
     Indication: Streptococcal abscess

REACTIONS (4)
  - Breast abscess [Recovered/Resolved]
  - Streptococcal abscess [Recovered/Resolved]
  - Foetal death [Unknown]
  - Maternal exposure during pregnancy [Unknown]
